FAERS Safety Report 8933429 (Version 1)
Quarter: 2012Q4

REPORT INFORMATION
  Report Type: 
  Country: GB (occurrence: GB)
  Receive Date: 20121128
  Receipt Date: 20121128
  Transmission Date: 20130627
  Serious: Yes (Hospitalization)
  Sender: FDA-Public Use
  Company Number: GB-PFIZER INC-2012296528

PATIENT
  Age: 57 Year
  Sex: Male
  Weight: 79.6 kg

DRUGS (9)
  1. GENOTROPIN [Suspect]
     Indication: GROWTH HORMONE DEFICIENCY
     Dosage: 0.7 mg, 1x/day, 7 injections/week
     Route: 058
     Dates: start: 20070226
  2. SUSTANON [Concomitant]
     Indication: LUTEINIZING HORMONE DEFICIENCY
     Dosage: UNK
     Dates: start: 20010125
  3. SUSTANON [Concomitant]
     Indication: FOLLICLE-STIMULATING HORMONE DEFICIENCY
  4. SUSTANON [Concomitant]
     Indication: TESTICULAR HYPOGONADISM
  5. HYDROCORTISONE [Concomitant]
     Indication: ACTH DECREASED
     Dosage: UNK
     Dates: start: 20010404
  6. LEVOTHYROXINE [Concomitant]
     Indication: TSH DECREASED
     Dosage: UNK
     Dates: start: 20011123
  7. LEVOTHYROXINE [Concomitant]
     Indication: PRIMARY HYPOTHYROIDISM
  8. CITALOPRAM [Concomitant]
     Indication: DEPRESSIVE ILLNESS
     Dosage: UNK
     Dates: start: 20020222
  9. CITALOPRAM [Concomitant]
     Indication: PANIC DISORDER

REACTIONS (1)
  - Chest pain [Unknown]
